FAERS Safety Report 4800675-9 (Version None)
Quarter: 2005Q3

REPORT INFORMATION
  Report Type: 
  Country: None (occurrence: None)
  Receive Date: 20050927
  Receipt Date: 20050729
  Transmission Date: 20060218
  Serious: Yes (Other)
  Sender: FDA-Public Use
  Company Number: 2005BH000983

PATIENT

DRUGS (2)
  1. VINORELBINE TARTRATE [Suspect]
     Indication: NON-SMALL CELL LUNG CANCER
     Dosage: 25 MG; EVERY 3 WK
  2. GEMCITABINE (GEMCITABINE) [Suspect]
     Indication: NON-SMALL CELL LUNG CANCER
     Dosage: 1000 MG; EVERY 3 WK

REACTIONS (1)
  - FEBRILE NEUTROPENIA [None]
